FAERS Safety Report 16066467 (Version 1)
Quarter: 2019Q1

REPORT INFORMATION
  Report Type: Spontaneous
  Country: US (occurrence: US)
  Receive Date: 20190212
  Receipt Date: 20190212
  Transmission Date: 20190418
  Serious: No
  Sender: FDA-Public Use
  Company Number: None

PATIENT
  Age: 64 Year
  Sex: Male

DRUGS (2)
  1. FISH OIL [Concomitant]
     Active Substance: FISH OIL
  2. ADVATE [Suspect]
     Active Substance: ANTIHEMOPHILIC FACTOR, HUMAN RECOMBINANT
     Indication: FACTOR VII DEFICIENCY
     Route: 040
     Dates: start: 20190211, end: 20190212

REACTIONS (4)
  - Diarrhoea haemorrhagic [None]
  - Diarrhoea [None]
  - Hypovolaemia [None]
  - Platelet count decreased [None]
